FAERS Safety Report 21435833 (Version 1)
Quarter: 2022Q4

REPORT INFORMATION
  Report Type: Spontaneous
  Country: AU (occurrence: AU)
  Receive Date: 20221010
  Receipt Date: 20221010
  Transmission Date: 20230113
  Serious: Yes (Other)
  Sender: FDA-Public Use
  Company Number: AU-HBT LABS-2022HBT00003

PATIENT
  Age: 66 Year
  Sex: Female

DRUGS (1)
  1. PACLITAXEL [Suspect]
     Active Substance: PACLITAXEL
     Indication: Breast cancer
     Route: 065

REACTIONS (4)
  - Uveitis [Recovered/Resolved]
  - Toxicity to various agents [Recovered/Resolved]
  - Nail disorder [Unknown]
  - Neuropathy peripheral [Unknown]
